FAERS Safety Report 6408291 (Version 5)
Quarter: 2013Q1

REPORT INFORMATION
  Report Type: Spontaneous
  Country: GB (occurrence: GB)
  Receive Date: 20070907
  Receipt Date: 20130320
  Transmission Date: 20140127
  Serious: Yes (Death)
  Sender: FDA-Public Use
  Company Number: GB-JNJFOC-20040902687

PATIENT
  Age: 67 Year
  Sex: Female

DRUGS (2)
  1. IBUPROFEN [Suspect]
     Indication: PRODUCT USED FOR UNKNOWN INDICATION
     Route: 048
  2. ASPIRIN [Suspect]
     Indication: PRODUCT USED FOR UNKNOWN INDICATION

REACTIONS (9)
  - Cardiac arrest [Fatal]
  - Coma [Fatal]
  - Hypotension [Fatal]
  - Hyperventilation [Unknown]
  - Toxicity to various agents [Fatal]
  - Overdose [Fatal]
  - Deafness [Fatal]
  - Confusional state [Fatal]
  - Vomiting [Unknown]
